FAERS Safety Report 8418860-6 (Version None)
Quarter: 2012Q2

REPORT INFORMATION
  Report Type: 
  Country: None (occurrence: None)
  Receive Date: 20120607
  Receipt Date: 20120531
  Transmission Date: 20120825
  Serious: Yes (Hospitalization)
  Sender: FDA-Public Use
  Company Number: FR-SANOFI-AVENTIS-2012SA038465

PATIENT
  Age: 78 Year
  Sex: Male

DRUGS (10)
  1. PENTOXIFYLLINE [Suspect]
     Indication: CARDIOMYOPATHY
     Route: 048
     Dates: start: 20060101, end: 20111205
  2. PERINDOPRIL ERBUMINE [Suspect]
     Dosage: STRENGTH; 4 MG
     Route: 048
  3. LASIX [Suspect]
     Dosage: STRENGTH; 40 MG
     Route: 048
     Dates: end: 20111205
  4. ACETAMINOPHEN [Concomitant]
     Dates: start: 20111201
  5. ACETAMINOPHEN [Concomitant]
     Dates: start: 20111201
  6. BISOPROLOL FUMARATE [Suspect]
     Route: 048
  7. ACETAMINOPHEN [Concomitant]
     Indication: CHILLS
     Dates: start: 20111201
  8. ROSUVASTATIN [Suspect]
     Route: 048
  9. ASPIRIN [Suspect]
     Dosage: STRENGTH; 75 MG
     Route: 048
  10. ACETAMINOPHEN [Concomitant]
     Dates: start: 20111201

REACTIONS (1)
  - VASCULAR PURPURA [None]
